FAERS Safety Report 6822769-9 (Version None)
Quarter: 2010Q3

REPORT INFORMATION
  Report Type: 
  Country: None (occurrence: None)
  Receive Date: 20100706
  Receipt Date: 20100706
  Transmission Date: 20110219
  Serious: No
  Sender: FDA-Public Use
  Company Number: None

PATIENT
  Sex: Male

DRUGS (1)
  1. DORZOLAMIDE HYDROCHLORIDE AND TIMOLOL MALEATE [Suspect]
     Indication: GLAUCOMA
     Dosage: 1 DROP INTO LEFT EYE BID OPHTHALMIC
     Route: 047
     Dates: start: 20100312, end: 20100312

REACTIONS (3)
  - DRUG HYPERSENSITIVITY [None]
  - EYE SWELLING [None]
  - PRODUCT SUBSTITUTION ISSUE [None]
